FAERS Safety Report 10724789 (Version 2)
Quarter: 2015Q4

REPORT INFORMATION
  Report Type: Spontaneous
  Country: US (occurrence: US)
  Receive Date: 20150120
  Receipt Date: 20151009
  Transmission Date: 20160304
  Serious: Yes (Congenital Anomaly)
  Sender: FDA-Public Use
  Company Number: US-ABBVIE-15P-163-1334385-00

PATIENT
  Sex: Female

DRUGS (2)
  1. DEPAKOTE [Suspect]
     Active Substance: DIVALPROEX SODIUM
     Indication: MATERNAL EXPOSURE TIMING UNSPECIFIED
     Route: 064
  2. FOLIC ACID. [Concomitant]
     Active Substance: FOLIC ACID
     Indication: MATERNAL EXPOSURE TIMING UNSPECIFIED
     Route: 064

REACTIONS (12)
  - Brachydactyly [Unknown]
  - Foetal anticonvulsant syndrome [Unknown]
  - Dysmorphism [Unknown]
  - Atrial septal defect [Unknown]
  - Arnold-Chiari malformation [Unknown]
  - Meningomyelocele [Unknown]
  - Spine malformation [Unknown]
  - Prominent epicanthal folds [Unknown]
  - Ventricular septal defect [Unknown]
  - Congenital central nervous system anomaly [Unknown]
  - Foetal exposure during pregnancy [Unknown]
  - Congenital nose malformation [Unknown]
